FAERS Safety Report 4357538-5 (Version None)
Quarter: 2004Q2

REPORT INFORMATION
  Report Type: 
  Country: None (occurrence: None)
  Receive Date: 20040510
  Receipt Date: 20040427
  Transmission Date: 20050107
  Serious: Yes (Hospitalization)
  Sender: FDA-Public Use
  Company Number: 04P-161-0246497-00

PATIENT
  Age: 40 Year
  Sex: Male

DRUGS (4)
  1. COLCHICINE (COLCHICINE) [Suspect]
     Dosage: SEE IMAGE
     Route: 048
     Dates: start: 19980101, end: 20010901
  2. GEMFIBROZIL [Suspect]
     Dosage: 600 MG, 1 IN 12 HR, PER ORAL
     Route: 048
     Dates: start: 20010801, end: 20010901
  3. ESSENTIAL AMINO ACID TABLETS [Concomitant]
  4. CALCITRIOL [Concomitant]

REACTIONS (5)
  - DRUG INTERACTION POTENTIATION [None]
  - HEPATITIS B SURFACE ANTIGEN POSITIVE [None]
  - RENAL FAILURE ACUTE [None]
  - RHABDOMYOLYSIS [None]
  - THERAPEUTIC AGENT TOXICITY [None]
